FAERS Safety Report 6164456-9 (Version None)
Quarter: 2009Q2

REPORT INFORMATION
  Report Type: 
  Country: None (occurrence: None)
  Receive Date: 20090421
  Receipt Date: 20090413
  Transmission Date: 20091009
  Serious: No
  Sender: FDA-Public Use
  Company Number: SPI200900060

PATIENT
  Age: 56 Year
  Sex: Female
  Weight: 68 kg

DRUGS (23)
  1. AMITIZA [Suspect]
     Indication: CONSTIPATION
     Dosage: 24 MCG, 1 OR 2 QD, ORAL
     Route: 048
     Dates: start: 20080719, end: 20080926
  2. AMITIZA [Suspect]
     Indication: IRRITABLE BOWEL SYNDROME
     Dosage: 24 MCG, 1 OR 2 QD, ORAL
     Route: 048
     Dates: start: 20080719, end: 20080926
  3. PROZAC [Concomitant]
  4. DOXEPIN HCL [Concomitant]
  5. LYRICA [Concomitant]
  6. METOPROLOL TARTRATE [Concomitant]
  7. PETADOLEX /01650302/ (PETASITES HYBRIDUS RHIZOME) [Concomitant]
  8. SOMA [Concomitant]
  9. VIVELLE /00045401/ (ESTRADIOL) PATCH [Concomitant]
  10. ACTONEL [Concomitant]
  11. VALTREX [Concomitant]
  12. ADVAIR DISKUS 100/50 [Concomitant]
  13. HYDROCODONE (HYDROCODONE) TABLET, 5 MG [Concomitant]
  14. SALEX /00021201/ (SALICYLIC ACID) CREAM [Concomitant]
  15. MULTIVITAMIN /00831701/ (ASCORBIC ACID) [Concomitant]
  16. FISH OIL (FISH OIL) [Concomitant]
  17. LORATADINE [Concomitant]
  18. MAXALT /01406501/ (RIZATRIPTAN) [Concomitant]
  19. PHENERGAN /00033001/ (PROMETHAZINE) [Concomitant]
  20. AMBIEN [Concomitant]
  21. CALCIUM [Concomitant]
  22. MAGNESIUM SULFATE [Concomitant]
  23. ASCORBIC ACID [Concomitant]

REACTIONS (17)
  - ABDOMINAL DISTENSION [None]
  - ANOREXIA [None]
  - ARTHRALGIA [None]
  - BLOOD PRESSURE SYSTOLIC INCREASED [None]
  - CANDIDIASIS [None]
  - CHILLS [None]
  - DYSPNOEA EXERTIONAL [None]
  - FATIGUE [None]
  - HEADACHE [None]
  - HEART RATE INCREASED [None]
  - INSOMNIA [None]
  - MUSCLE TWITCHING [None]
  - NAUSEA [None]
  - PAIN [None]
  - PRURITUS [None]
  - PYREXIA [None]
  - WEIGHT DECREASED [None]
